FAERS Safety Report 19074990 (Version 2)
Quarter: 2021Q2

REPORT INFORMATION
  Report Type: Spontaneous
  Country: US (occurrence: US)
  Receive Date: 20210330
  Receipt Date: 20210401
  Transmission Date: 20210717
  Serious: Yes (Other)
  Sender: FDA-Public Use
  Company Number: US-MYLANLABS-2021M1018425

PATIENT
  Sex: Female

DRUGS (2)
  1. OCREVUS [Concomitant]
     Active Substance: OCRELIZUMAB
     Dosage: UNK
  2. PREDNISONE. [Suspect]
     Active Substance: PREDNISONE
     Indication: MULTIPLE SCLEROSIS
     Dosage: UNK
     Route: 065
     Dates: start: 202002

REACTIONS (3)
  - Multiple sclerosis [Unknown]
  - Drug ineffective [Unknown]
  - Swelling face [Unknown]
